FAERS Safety Report 4519391-6 (Version None)
Quarter: 2004Q4

REPORT INFORMATION
  Report Type: 
  Country: None (occurrence: None)
  Receive Date: 20041206
  Receipt Date: 20030908
  Transmission Date: 20050328
  Serious: Yes (Hospitalization)
  Sender: FDA-Public Use
  Company Number: CHPA2003US03824

PATIENT
  Age: 70 Year
  Sex: Female
  Weight: 106.6 kg

DRUGS (1)
  1. ASCRIPTIN BUFFERED MAX STRENGTH CAPLETS (NCH)(ACETYLSALICYLIC ACID) UN [Suspect]
     Indication: ARTHRITIS
     Dosage: 1000 MG, QPM, ORAL
     Route: 048
     Dates: start: 20020101

REACTIONS (1)
  - DRUG INEFFECTIVE [None]
